FAERS Safety Report 5150178-X (Version None)
Quarter: 2006Q4

REPORT INFORMATION
  Report Type: 
  Country: None (occurrence: None)
  Receive Date: 20061114
  Receipt Date: 20061031
  Transmission Date: 20070319
  Serious: Yes (Other)
  Sender: FDA-Public Use
  Company Number: PHNU2006DE03594

PATIENT
  Sex: Male

DRUGS (4)
  1. DIOVAN [Suspect]
     Indication: HYPERTENSION
     Dosage: 1 DF, QD
     Dates: start: 20060101
  2. HYPERICUM PERFORATUM HERB [Concomitant]
  3. URALYT [Concomitant]
     Indication: CALCINOSIS
  4. ANTIBIOTICS [Concomitant]
     Indication: TOOTH DISORDER
     Dates: end: 20061001

REACTIONS (7)
  - ECZEMA [None]
  - LIBIDO DECREASED [None]
  - LYMPHADENOPATHY [None]
  - NUCLEAR MAGNETIC RESONANCE IMAGING ABNORMAL [None]
  - RASH PUSTULAR [None]
  - RASH VESICULAR [None]
  - SPINAL OSTEOARTHRITIS [None]
